FAERS Safety Report 5684063 (Version 4)
Quarter: 2020Q3

REPORT INFORMATION
  Report Type: Report from Study
  Country: US (occurrence: US)
  Receive Date: 20041129
  Receipt Date: 20050124
  Transmission Date: 20201105
  Serious: Yes (Death, Other)
  Sender: FDA-Public Use
  Company Number: US-JNJFOC-20041104977

PATIENT
  Age: 53 Year
  Sex: Male
  Weight: 146 kg

DRUGS (35)
  1. NESIRITIDE [Suspect]
     Active Substance: NESIRITIDE
     Dosage: 0.01 UG/KG/MINUTE AS A CONTINUOUS INFUSION OR PLACEBO
     Route: 042
  2. CYTOMEL [Concomitant]
     Active Substance: LIOTHYRONINE SODIUM
  3. CEFEPIME [Concomitant]
     Active Substance: CEFEPIME HYDROCHLORIDE
     Route: 042
  4. SODIUM BICARBONATE. [Concomitant]
     Active Substance: SODIUM BICARBONATE
     Dosage: 7.5% (44 MEQ) IV PUSH
  5. FAMOTIDINE. [Concomitant]
     Active Substance: FAMOTIDINE
  6. HUMULIN R [Concomitant]
     Active Substance: INSULIN HUMAN
  7. DEMEROL [Concomitant]
     Active Substance: MEPERIDINE HYDROCHLORIDE
     Dosage: 50?75 MG IV PUSH EVERY 3 HOURS PRN SHIVERING OR MS ALLERGY.
     Route: 042
  8. METOPROLOL. [Concomitant]
     Active Substance: METOPROLOL
  9. LORTAB [Concomitant]
     Active Substance: ACETAMINOPHEN\HYDROCODONE BITARTRATE
  10. LORTAB [Concomitant]
     Active Substance: ACETAMINOPHEN\HYDROCODONE BITARTRATE
     Dosage: 5/500
  11. POTASSIUM CHLORIDE. [Concomitant]
     Active Substance: POTASSIUM CHLORIDE
     Dosage: IVPB OVER ONE HOUR TO MAINTAIN SERUM K {4.5
     Route: 042
  12. MORPHINE SULFATE. [Concomitant]
     Active Substance: MORPHINE SULFATE
     Dosage: 2?5 MG EVERY 30 MINUTES PRN PAIN WHILE INTUBATED.
     Route: 042
  13. MORPHINE [Concomitant]
     Active Substance: MORPHINE
     Route: 050
  14. VANCOMYCIN [Concomitant]
     Active Substance: VANCOMYCIN
     Route: 042
  15. HUMULIN R [Concomitant]
     Active Substance: INSULIN HUMAN
     Dosage: SLIDING SCALE AS NEEDED TO KEEP BLOOD SUGAR {350; INSULIN DRIP FOR BLOOD SUGAR }350.
  16. GABAPENTIN. [Concomitant]
     Active Substance: GABAPENTIN
  17. INSULIN NOS [Concomitant]
     Active Substance: INSULIN NOS
  18. ALBUTEROL. [Concomitant]
     Active Substance: ALBUTEROL
     Route: 055
  19. MORPHINE SULFATE. [Concomitant]
     Active Substance: MORPHINE SULFATE
     Dosage: 4?6 MG EVERY 3 HOURS PRN PAIN AFTER EXTUBATION
     Route: 042
  20. VALIUM [Concomitant]
     Active Substance: DIAZEPAM
     Dosage: PRN SEDATION WHILE ON VENTILATOR
  21. NESIRITIDE [Suspect]
     Active Substance: NESIRITIDE
     Route: 042
  22. ASPIRIN. [Concomitant]
     Active Substance: ASPIRIN
     Route: 049
  23. LISINOPRIL. [Concomitant]
     Active Substance: LISINOPRIL
  24. FUROSEMIDE. [Concomitant]
     Active Substance: FUROSEMIDE
  25. LEVOFLOXACIN. [Concomitant]
     Active Substance: LEVOFLOXACIN
  26. ACETAMINOPHEN. [Concomitant]
     Active Substance: ACETAMINOPHEN
     Dosage: PRN TEMP}102
     Route: 054
  27. ANZEMET [Concomitant]
     Active Substance: DOLASETRON MESYLATE
     Dosage: PRN NAUSEA
  28. PEPCID [Concomitant]
     Active Substance: FAMOTIDINE
     Route: 040
  29. LASIX [Concomitant]
     Active Substance: FUROSEMIDE
  30. ISOSORBIDE DINITRATE. [Concomitant]
     Active Substance: ISOSORBIDE DINITRATE
  31. TRAZODONE HYDROCHLORIDE. [Concomitant]
     Active Substance: TRAZODONE HYDROCHLORIDE
  32. NPH INSULIN [Concomitant]
     Active Substance: INSULIN BEEF
  33. ZOLOFT [Concomitant]
     Active Substance: SERTRALINE HYDROCHLORIDE
  34. PROTAMINE SULFATE. [Concomitant]
     Active Substance: PROTAMINE SULFATE
     Route: 042
  35. ZOCOR [Concomitant]
     Active Substance: SIMVASTATIN

REACTIONS (14)
  - Post procedural complication [None]
  - Myocardial infarction [None]
  - Acute kidney injury [None]
  - Dyslipidaemia [None]
  - Atrial fibrillation [None]
  - Cardiac arrest [Fatal]
  - Peripheral vascular disorder [None]
  - Depression [None]
  - Chronic kidney disease [None]
  - Coronary artery disease [None]
  - Hypertension [None]
  - Type 1 diabetes mellitus [None]
  - Cardiac failure [Fatal]
  - Diabetic neuropathy [None]

NARRATIVE: CASE EVENT DATE: 20041117
